FAERS Safety Report 12110773 (Version 1)
Quarter: 2016Q1

REPORT INFORMATION
  Report Type: Spontaneous
  Country: US (occurrence: US)
  Receive Date: 20160224
  Receipt Date: 20160224
  Transmission Date: 20160526
  Serious: No
  Sender: FDA-Public Use
  Company Number: US-JAZZ-2015-US-003412

PATIENT

DRUGS (1)
  1. PRIALT [Suspect]
     Active Substance: ZICONOTIDE ACETATE
     Dosage: 3 ?G, SINGLE
     Route: 037
     Dates: start: 2013, end: 2013

REACTIONS (2)
  - Off label use [Unknown]
  - Perineal pain [Unknown]

NARRATIVE: CASE EVENT DATE: 2013
